FAERS Safety Report 19960503 (Version 12)
Quarter: 2022Q2

REPORT INFORMATION
  Report Type: Report from Study
  Country: US (occurrence: US)
  Receive Date: 20211015
  Receipt Date: 20220628
  Transmission Date: 20220721
  Serious: Yes (Death, Hospitalization, Other)
  Sender: FDA-Public Use
  Company Number: US-EVEREST MEDICINES II (HK) LIMITED-2021-0551754

PATIENT
  Age: 82 Year
  Sex: Female
  Weight: 87.5 kg

DRUGS (58)
  1. SACITUZUMAB GOVITECAN [Suspect]
     Active Substance: SACITUZUMAB GOVITECAN
     Indication: Bladder transitional cell carcinoma
     Dosage: 816 MG; DAY1 AND D8 OF EACH 21 DAY CYCLE
     Route: 042
     Dates: start: 20210915, end: 20210922
  2. ATEZOLIZUMAB [Suspect]
     Active Substance: ATEZOLIZUMAB
     Indication: Bladder transitional cell carcinoma
     Dosage: 1200 MG, Q3WK
     Route: 041
     Dates: start: 20210203, end: 20210915
  3. TIRAGOLUMAB [Suspect]
     Active Substance: TIRAGOLUMAB
     Indication: Bladder transitional cell carcinoma
     Dosage: 600 MG, Q3WK
     Route: 042
     Dates: start: 20210203, end: 20210804
  4. HYDROXYZINE HYDROCHLORIDE [Concomitant]
     Active Substance: HYDROXYZINE HYDROCHLORIDE
     Indication: Rash maculo-papular
     Dosage: 25 MG; 1 IN 1 AS REQUIRED
     Dates: start: 20210407, end: 20211006
  5. TRIAMCINOLONE ACETONIDE [Concomitant]
     Active Substance: TRIAMCINOLONE ACETONIDE
     Indication: Pruritus
     Dosage: UNK
     Dates: start: 20210414, end: 20210922
  6. CYMBALTA [Concomitant]
     Active Substance: DULOXETINE HYDROCHLORIDE
     Indication: Neuropathy peripheral
     Dosage: UNK
  7. CYMBALTA [Concomitant]
     Active Substance: DULOXETINE HYDROCHLORIDE
     Dosage: 60 MG, BID
     Route: 048
     Dates: start: 20210505, end: 20211006
  8. ONDANSETRON [Concomitant]
     Active Substance: ONDANSETRON
     Dosage: UNK
     Dates: start: 20210615, end: 20211006
  9. PERCOCET [Concomitant]
     Active Substance: ACETAMINOPHEN\OXYCODONE HYDROCHLORIDE
     Dosage: UNK
     Dates: start: 20210625, end: 20211006
  10. MYCOSTATIN [Concomitant]
     Active Substance: NYSTATIN
     Indication: Candida infection
     Dosage: UNK
     Dates: start: 20210901, end: 20211006
  11. MYCELEX [Concomitant]
     Active Substance: CLOTRIMAZOLE
     Indication: Candida infection
     Dosage: UNK
     Dates: start: 20210901, end: 20211006
  12. DECADRON [Concomitant]
     Active Substance: DEXAMETHASONE
     Dosage: UNK
     Dates: start: 20210915, end: 20211006
  13. COMPAZINE [Concomitant]
     Active Substance: PROCHLORPERAZINE MALEATE
     Indication: Vomiting
     Dosage: UNK
     Dates: start: 20210917, end: 20211006
  14. ATIVAN [Concomitant]
     Active Substance: LORAZEPAM
     Indication: Vomiting
     Dosage: UNK
     Dates: end: 20211006
  15. MYRBETRIQ [Concomitant]
     Active Substance: MIRABEGRON
     Indication: Bladder spasm
     Dosage: UNK
     Dates: start: 20210922
  16. CLOBETASOL [Concomitant]
     Active Substance: CLOBETASOL
     Indication: Rash maculo-papular
     Dosage: UNK
     Dates: start: 20210312, end: 20211006
  17. ASPIRIN [Concomitant]
     Active Substance: ASPIRIN
     Dosage: 81 MG, QD
     Route: 048
  18. LIPITOR [Concomitant]
     Active Substance: ATORVASTATIN CALCIUM
     Dosage: 10 MG, QD
     Route: 048
  19. VITAMIN D3 [Concomitant]
     Active Substance: CHOLECALCIFEROL
     Dosage: 5000 IU, BID
     Route: 048
  20. WIXELA INHUB [Concomitant]
     Active Substance: FLUTICASONE PROPIONATE\SALMETEROL XINAFOATE
     Dosage: 250 UG, BID
     Route: 055
  21. VASCEPA [Concomitant]
     Active Substance: ICOSAPENT ETHYL
     Dosage: 1 G
     Dates: start: 20200331
  22. LIDODERM [Concomitant]
     Active Substance: LIDOCAINE
     Indication: Back pain
     Dosage: 1 DOSAGE FORM, QD; 5%
     Route: 062
  23. PRINIVIL [Concomitant]
     Active Substance: LISINOPRIL
     Indication: Hypertension
     Dosage: 20 MG, BID
     Route: 048
  24. YUPELRI [Concomitant]
     Active Substance: REVEFENACIN
     Indication: Chronic obstructive pulmonary disease
     Dosage: 175 UG, PRN
     Route: 055
  25. DALIRESP [Concomitant]
     Active Substance: ROFLUMILAST
     Indication: Chronic obstructive pulmonary disease
     Dosage: 500 UG
     Route: 048
  26. FLOMAX [Concomitant]
     Active Substance: TAMSULOSIN HYDROCHLORIDE
     Indication: Dysuria
     Dosage: 0.4 MG
     Dates: start: 20200702
  27. LIDOCAINE [Concomitant]
     Active Substance: LIDOCAINE
     Dosage: 1 DOSAGE QD; 5%
     Route: 062
  28. LISINOPRIL [Concomitant]
     Active Substance: LISINOPRIL
     Indication: Hypertension
     Dosage: 10 MG, QD
     Route: 048
  29. BENADRYL [Concomitant]
     Active Substance: DIPHENHYDRAMINE HYDROCHLORIDE
     Indication: Rash
     Dosage: 25 MG; 1 IN 1 AS REQUIRED
     Route: 048
     Dates: start: 20210310
  30. IMODIUM [Concomitant]
     Active Substance: LOPERAMIDE HYDROCHLORIDE
     Indication: Diarrhoea
     Dosage: 1 DOSAGE FORM, QD; AS NEEDED
  31. PEPCID [Concomitant]
     Active Substance: FAMOTIDINE
     Indication: Cough
     Dosage: 40 MG, BID
     Route: 048
     Dates: start: 20210521
  32. AUGMENTIN [Concomitant]
     Active Substance: AMOXICILLIN\CLAVULANATE POTASSIUM
     Indication: Urinary tract infection
     Dosage: 125 MG, BID
     Dates: start: 20210917, end: 20210924
  33. ACETAMINOPHEN [Concomitant]
     Active Substance: ACETAMINOPHEN
     Indication: Pyrexia
     Dosage: 650 MG, PRN
     Dates: start: 20210930, end: 20210930
  34. MAGNESIUM OXIDE [Concomitant]
     Active Substance: MAGNESIUM OXIDE
     Indication: Blood magnesium decreased
  35. GLUCOPHAGE [Concomitant]
     Active Substance: METFORMIN HYDROCHLORIDE
     Indication: Diabetes mellitus
  36. PROTONIX [Concomitant]
     Active Substance: PANTOPRAZOLE SODIUM
     Indication: Gastrooesophageal reflux disease
  37. ADMELOG [Concomitant]
     Active Substance: INSULIN LISPRO
     Indication: Hypoglycaemia
     Dosage: 5U (4 IN 1 D)
     Route: 058
     Dates: start: 20211001, end: 20211005
  38. DUONEB [Concomitant]
     Active Substance: ALBUTEROL SULFATE\IPRATROPIUM BROMIDE
     Indication: Wheezing
     Dosage: UNK, PRN
     Dates: start: 20210928
  39. DUONEB [Concomitant]
     Active Substance: ALBUTEROL SULFATE\IPRATROPIUM BROMIDE
     Indication: Dyspnoea
  40. CALCIUM GLUCONATE [Concomitant]
     Active Substance: CALCIUM GLUCONATE
     Indication: Electrolyte substitution therapy
     Dosage: UNK
     Route: 042
     Dates: start: 20210930, end: 20211002
  41. DILAUDID [Concomitant]
     Active Substance: HYDROMORPHONE HYDROCHLORIDE
     Indication: Pain
     Dosage: 1 MG, QD
     Route: 042
     Dates: start: 20210928, end: 20210928
  42. MAXIPIME [Concomitant]
     Active Substance: CEFEPIME HYDROCHLORIDE
     Dosage: (2 G,2 IN 1 D)
     Route: 042
     Dates: start: 20211003, end: 20211005
  43. MAXIPIME [Concomitant]
     Active Substance: CEFEPIME HYDROCHLORIDE
     Dosage: (1 G,2 IN 1 D)
     Route: 042
     Dates: start: 20210928, end: 20211003
  44. LANTUS [Concomitant]
     Active Substance: INSULIN GLARGINE
     Dosage: 10U (2 IN 1 D)
     Route: 058
     Dates: start: 20211002, end: 20211005
  45. PRECEDEX [Concomitant]
     Active Substance: DEXMEDETOMIDINE HYDROCHLORIDE
     Indication: Sedation
     Dosage: 0.2 UG, QD
     Route: 042
     Dates: start: 20210928, end: 20211005
  46. DEXTRAN 70;HYPROMELLOSE [Concomitant]
     Indication: Dry eye
     Dosage: 1 GTT,3 IN 1 HR
     Route: 047
     Dates: start: 20210929, end: 20211005
  47. LANOXIN [Concomitant]
     Active Substance: DIGOXIN
     Indication: Cardiac failure
     Dosage: UNK
     Dates: start: 20210928, end: 20210928
  48. DOBUTREX [Concomitant]
     Active Substance: DOBUTAMINE HYDROCHLORIDE
     Indication: Hypotension
     Dosage: 500 MG, QD
     Route: 042
     Dates: start: 20210928
  49. ADRENALIN (EPINEPHRINE) [Concomitant]
     Active Substance: EPINEPHRINE
     Indication: Hypotension
     Dosage: 5 MG, QD
     Route: 042
     Dates: start: 20210929
  50. MYCAMINE [Concomitant]
     Active Substance: MICAFUNGIN SODIUM
     Dosage: 100 MG, QD
     Route: 042
     Dates: start: 20211001, end: 20211005
  51. SUBLIMAZE [Concomitant]
     Active Substance: FENTANYL CITRATE
     Indication: Sedation
     Dosage: 2500 UG, QD
     Route: 042
     Dates: start: 20211001
  52. SUBLIMAZE [Concomitant]
     Active Substance: FENTANYL CITRATE
     Dosage: UNK, SOLUTION
     Route: 048
  53. NIVESTYM [FILGRASTIM AAFI] [Concomitant]
     Indication: Neutropenia
     Dosage: (300 ?G,1 IN 1 D)
     Route: 058
     Dates: start: 20210928, end: 20211002
  54. DIFLUCAN [Concomitant]
     Active Substance: FLUCONAZOLE
     Dosage: 200 MG,1 IN 1 D
     Route: 042
     Dates: start: 20210929, end: 20210930
  55. ADVAIR HFA [Concomitant]
     Active Substance: FLUTICASONE PROPIONATE\SALMETEROL XINAFOATE
     Dosage: 1 INHALATION
     Route: 055
     Dates: start: 20210928, end: 20210928
  56. VERSED [Concomitant]
     Active Substance: MIDAZOLAM HYDROCHLORIDE
     Indication: Sedation
     Dosage: 100 MG, QD
     Route: 042
     Dates: start: 20210929, end: 20211002
  57. ZOFRAN [Concomitant]
     Active Substance: ONDANSETRON HYDROCHLORIDE
     Indication: Vomiting
     Dosage: 4 MG, PRN
     Route: 042
     Dates: start: 20210928
  58. POTASSIUM CHLORIDE [Concomitant]
     Active Substance: POTASSIUM CHLORIDE
     Indication: Electrolyte substitution therapy
     Dosage: 10 OTHER
     Route: 042
     Dates: start: 20210928, end: 20211004

REACTIONS (4)
  - Distributive shock [Fatal]
  - Diarrhoea [Not Recovered/Not Resolved]
  - Abdominal pain [Not Recovered/Not Resolved]
  - Neutropenia [Unknown]

NARRATIVE: CASE EVENT DATE: 20210922
